FAERS Safety Report 23296941 (Version 1)
Quarter: 2023Q4

REPORT INFORMATION
  Report Type: Spontaneous
  Country: US (occurrence: US)
  Receive Date: 20231214
  Receipt Date: 20231214
  Transmission Date: 20240110
  Serious: No
  Sender: FDA-Public Use
  Company Number: US-SA-SAC20231212000348

PATIENT
  Age: 74 Year
  Sex: Female

DRUGS (2)
  1. DUPIXENT [Suspect]
     Active Substance: DUPILUMAB
     Dosage: UNK
     Route: 058
     Dates: start: 20231109
  2. ZYRTEC [Concomitant]
     Active Substance: CETIRIZINE HYDROCHLORIDE
     Indication: Hypersensitivity

REACTIONS (5)
  - Dry skin [Not Recovered/Not Resolved]
  - Skin weeping [Not Recovered/Not Resolved]
  - Sleep disorder due to a general medical condition [Not Recovered/Not Resolved]
  - Pain in extremity [Not Recovered/Not Resolved]
  - Dry eye [Not Recovered/Not Resolved]

NARRATIVE: CASE EVENT DATE: 20231101
